FAERS Safety Report 16930941 (Version 1)
Quarter: 2019Q4

REPORT INFORMATION
  Report Type: Spontaneous
  Country: US (occurrence: US)
  Receive Date: 20191017
  Receipt Date: 20191017
  Transmission Date: 20200122
  Serious: Yes (Hospitalization)
  Sender: FDA-Public Use
  Company Number: US-FRESENIUS KABI-FK201911465

PATIENT
  Age: 12 Month
  Sex: Male

DRUGS (1)
  1. DOXYCYCLINE FOR INJECTION (MANUFACTURER UNKNOWN) [Suspect]
     Active Substance: DOXYCYCLINE
     Indication: SCLEROTHERAPY
     Route: 065

REACTIONS (2)
  - Dysphagia [Recovered/Resolved]
  - Aspiration [Recovered/Resolved]
